FAERS Safety Report 8142243-X (Version None)
Quarter: 2012Q1

REPORT INFORMATION
  Report Type: 
  Country: None (occurrence: None)
  Receive Date: 20120216
  Receipt Date: 20120210
  Transmission Date: 20120608
  Serious: Yes (Other)
  Sender: FDA-Public Use
  Company Number: CN-SANOFI-AVENTIS-2012SA008830

PATIENT
  Age: 39 Year
  Sex: Female
  Weight: 50 kg

DRUGS (3)
  1. LANTUS [Suspect]
     Indication: DIABETES MELLITUS
     Route: 058
     Dates: start: 20120206, end: 20120209
  2. ACARBOSE [Concomitant]
     Indication: DIABETES MELLITUS
     Route: 048
     Dates: start: 20060101
  3. GLIPIZIDE [Concomitant]
     Indication: DIABETES MELLITUS
     Route: 048
     Dates: start: 20060101

REACTIONS (2)
  - LOSS OF CONSCIOUSNESS [None]
  - GAIT DISTURBANCE [None]
